FAERS Safety Report 6911399-6 (Version None)
Quarter: 2010Q3

REPORT INFORMATION
  Report Type: 
  Country: None (occurrence: None)
  Receive Date: 20100806
  Receipt Date: 20100727
  Transmission Date: 20110219
  Serious: Yes (Hospitalization, Other)
  Sender: FDA-Public Use
  Company Number: GB-PFIZER INC-2010093693

PATIENT
  Age: 64 Year
  Sex: Female

DRUGS (4)
  1. PHENYTOIN SODIUM CAP [Suspect]
     Indication: CONVULSION
     Dosage: 300 MG, UNK
     Dates: start: 20100629
  2. WARFARIN [Concomitant]
     Dosage: 5 MG, UNK
  3. IBANDRONIC ACID [Concomitant]
     Dosage: 50 MG, UNK
  4. CITRAZINE [Concomitant]
     Dosage: 10 MG, UNK

REACTIONS (2)
  - RASH GENERALISED [None]
  - SWELLING FACE [None]
